FAERS Safety Report 6298001 (Version 4)
Quarter: 2020Q3

REPORT INFORMATION
  Report Type: Report from Study
  Country: AT (occurrence: AT)
  Receive Date: 20070427
  Receipt Date: 20070510
  Transmission Date: 20201104
  Serious: Yes (Hospitalization, Disabling)
  Sender: FDA-Public Use
  Company Number: AT-JNJFOC-20070304118

PATIENT
  Age: 49 Year
  Sex: Female

DRUGS (5)
  1. INFLIXIMAB [Suspect]
     Active Substance: INFLIXIMAB
     Indication: COLITIS ULCERATIVE
  2. INFLIXIMAB [Suspect]
     Active Substance: INFLIXIMAB
  3. INFLIXIMAB [Suspect]
     Active Substance: INFLIXIMAB
  4. INFLIXIMAB [Suspect]
     Active Substance: INFLIXIMAB
  5. INFLIXIMAB [Suspect]
     Active Substance: INFLIXIMAB

REACTIONS (4)
  - Psychotic disorder [Recovering/Resolving]
  - Depression [Not Recovered/Not Resolved]
  - Facial bones fracture [Unknown]
  - Radius fracture [Unknown]

NARRATIVE: CASE EVENT DATE: 20061201
